FAERS Safety Report 19614015 (Version 1)
Quarter: 2021Q3

REPORT INFORMATION
  Report Type: Spontaneous
  Country: CN (occurrence: CN)
  Receive Date: 20210727
  Receipt Date: 20210727
  Transmission Date: 20211014
  Serious: Yes (Other)
  Sender: FDA-Public Use
  Company Number: CN-009507513-2107CHN006766

PATIENT
  Age: 63 Year
  Sex: Female

DRUGS (2)
  1. SODIUM CHLORIDE. [Concomitant]
     Active Substance: SODIUM CHLORIDE
     Indication: BILIARY TRACT INFECTION
     Dosage: 100 MILLILITER, Q8H
     Route: 041
     Dates: start: 20210702
  2. TIENAM [Suspect]
     Active Substance: CILASTATIN SODIUM\IMIPENEM
     Indication: BILIARY TRACT INFECTION
     Dosage: 1 GRAM, Q8H
     Route: 041
     Dates: start: 20210702, end: 20210705

REACTIONS (3)
  - Mental status changes [Recovering/Resolving]
  - Muscle twitching [Recovering/Resolving]
  - Muscle spasms [Recovering/Resolving]

NARRATIVE: CASE EVENT DATE: 20210705
